FAERS Safety Report 7402369-2 (Version None)
Quarter: 2011Q1

REPORT INFORMATION
  Report Type: 
  Country: None (occurrence: None)
  Receive Date: 20110331
  Receipt Date: 20110317
  Transmission Date: 20110831
  Serious: Yes (Other)
  Sender: FDA-Public Use
  Company Number: GER/GER/11/0017853

PATIENT
  Age: 79 Year
  Sex: Male

DRUGS (1)
  1. CIPROBETA 250 MG FILMTABLETTEN (CIPROFLOXACIN HYDROCHLORIDE) [Suspect]
     Indication: PHLEBITIS
     Dosage: 250 MG, 2 IN 1 D, ORAL
     Route: 048

REACTIONS (3)
  - ARRHYTHMIA [None]
  - ARTHRALGIA [None]
  - TENDON PAIN [None]
